FAERS Safety Report 4532971-7 (Version None)
Quarter: 2004Q4

REPORT INFORMATION
  Report Type: 
  Country: None (occurrence: None)
  Receive Date: 20041220
  Receipt Date: 20041220
  Transmission Date: 20050328
  Serious: Yes (Other)
  Sender: FDA-Public Use
  Company Number: None

PATIENT
  Age: 42 Year
  Sex: Male
  Weight: 87.0906 kg

DRUGS (1)
  1. BEXTRA [Suspect]
     Indication: ARTHRITIS
     Dosage: 20MG  1 PER DAY ORAL
     Route: 048
     Dates: start: 20041214, end: 20041218

REACTIONS (5)
  - ARRHYTHMIA [None]
  - CHEST DISCOMFORT [None]
  - CONDITION AGGRAVATED [None]
  - HEART RATE INCREASED [None]
  - PAIN [None]
